FAERS Safety Report 10007656 (Version 1)
Quarter: 2014Q1

REPORT INFORMATION
  Report Type: Spontaneous
  Country: US (occurrence: US)
  Receive Date: 20140313
  Receipt Date: 20140313
  Transmission Date: 20141002
  Serious: No
  Sender: FDA-Public Use
  Company Number: US-BAYER-2014-037873

PATIENT
  Age: 26 Year
  Sex: Female
  Weight: 75 kg

DRUGS (1)
  1. ALEVE CAPLET [Suspect]
     Indication: HEADACHE
     Dosage: 3 DF, UNK
     Route: 048

REACTIONS (5)
  - Extra dose administered [None]
  - Retching [None]
  - Fatigue [None]
  - Dysarthria [Recovered/Resolved]
  - Vomiting [Recovered/Resolved]
